FAERS Safety Report 18273164 (Version 2)
Quarter: 2020Q3

REPORT INFORMATION
  Report Type: Report from Study
  Country: GB (occurrence: GB)
  Receive Date: 20200916
  Receipt Date: 20200924
  Transmission Date: 20201103
  Serious: Yes (Other)
  Sender: FDA-Public Use
  Company Number: GB-PFIZER INC-2020346725

PATIENT
  Weight: 20.9 kg

DRUGS (14)
  1. ONDANSETRON [Concomitant]
     Active Substance: ONDANSETRON
     Indication: NAUSEA
     Dosage: 4 MG, AS NEEDED
     Dates: start: 20200830, end: 20200830
  2. MITOXANTRONE HCL [Suspect]
     Active Substance: MITOXANTRONE HYDROCHLORIDE
     Indication: ACUTE MYELOID LEUKAEMIA
     Dosage: 10 MG/M2, DAILY
     Route: 042
     Dates: start: 20200818, end: 20200821
  3. CIPROFLOXACIN. [Concomitant]
     Active Substance: CIPROFLOXACIN
     Indication: PROPHYLAXIS
     Dosage: 110 MG, THREE TIMES A WEEK
     Dates: start: 20200821
  4. COTRIMOXAZOLE [Concomitant]
     Active Substance: SULFAMETHOXAZOLE\TRIMETHOPRIM
     Indication: PROPHYLAXIS
     Dosage: 360 MG, 2X/DAY
     Dates: start: 20200822, end: 20200830
  5. AMBISOME [Concomitant]
     Active Substance: AMPHOTERICIN B
     Indication: PROPHYLAXIS
     Dosage: 21 MG, CYCLIC (OTHER 3 TIMES PER WEEK)
     Dates: start: 20200904
  6. MORPHINE SULPHATE [Concomitant]
     Active Substance: MORPHINE SULFATE
     Indication: PAIN MANAGEMENT
     Dosage: 4.4 MG, AS NEEDED
     Dates: start: 20200825, end: 20200825
  7. CHLORPHENAMINE MALEATE [Concomitant]
     Active Substance: CHLORPHENIRAMINE MALEATE
     Indication: PRURITUS
     Dosage: 1 MG, AS NEEDED
     Dates: start: 20200824, end: 20200824
  8. CHLORPHENAMINE MALEATE [Concomitant]
     Active Substance: CHLORPHENIRAMINE MALEATE
     Dosage: 2.5 MG, AS NEEDED
     Dates: start: 20200903, end: 20200903
  9. GEMTUZUMAB OZOGAMICIN [Suspect]
     Active Substance: GEMTUZUMAB OZOGAMICIN
     Indication: ACUTE MYELOID LEUKAEMIA
     Dosage: 2.5 MG, CYCLIC
     Route: 042
     Dates: start: 20200821, end: 20200827
  10. LEVOMEPROMAZINE [Concomitant]
     Active Substance: LEVOMEPROMAZINE
     Indication: NAUSEA
     Dosage: 4.3 MG, 2X/DAY
     Dates: start: 20200818, end: 20200907
  11. PARACETAMOL [Concomitant]
     Active Substance: ACETAMINOPHEN
     Indication: PAIN MANAGEMENT
     Dosage: 320 MG, 1X/DAY
     Dates: start: 20200814, end: 20200830
  12. PARACETAMOL [Concomitant]
     Active Substance: ACETAMINOPHEN
     Indication: PYREXIA
  13. LEVOMEPROMAZINE [Concomitant]
     Active Substance: LEVOMEPROMAZINE
     Indication: VOMITING
  14. ONDANSETRON [Concomitant]
     Active Substance: ONDANSETRON
     Indication: VOMITING

REACTIONS (2)
  - Cystitis noninfective [Recovered/Resolved]
  - Haematuria [Recovered/Resolved]

NARRATIVE: CASE EVENT DATE: 20200902
